FAERS Safety Report 4372104-3 (Version None)
Quarter: 2004Q2

REPORT INFORMATION
  Report Type: 
  Country: None (occurrence: None)
  Receive Date: 20040602
  Receipt Date: 20040513
  Transmission Date: 20050107
  Serious: Yes (Life-Threatening)
  Sender: FDA-Public Use
  Company Number: 8005712

PATIENT
  Age: 32 Year
  Sex: Male

DRUGS (2)
  1. KEPPRA [Suspect]
     Indication: GRAND MAL CONVULSION
     Dosage: 500 MG 2/D PO; 500 MG 1/D PO
     Route: 048
     Dates: start: 20040115, end: 20040301
  2. KEPPRA [Suspect]
     Indication: GRAND MAL CONVULSION
     Dosage: 500 MG 2/D PO; 500 MG 1/D PO
     Route: 048
     Dates: start: 20040301

REACTIONS (3)
  - CONVULSION [None]
  - DYSPHAGIA [None]
  - LOCKED-IN SYNDROME [None]
